FAERS Safety Report 9508276 (Version 2)
Quarter: 2013Q3

REPORT INFORMATION
  Report Type: Spontaneous
  Country: US (occurrence: US)
  Receive Date: 20130909
  Receipt Date: 20130925
  Transmission Date: 20140515
  Serious: Yes (Other)
  Sender: FDA-Public Use
  Company Number: US-PFIZER INC-2013257890

PATIENT
  Age: 65 Year
  Sex: Female
  Weight: 111 kg

DRUGS (5)
  1. CALAN SR [Suspect]
     Indication: HYPERTENSION
     Dosage: 120 MG, 1X/DAY
     Route: 048
  2. CALAN SR [Suspect]
     Indication: HYPERTENSION
     Dosage: 180 MG, 1X/DAY
     Route: 048
  3. CALAN SR [Suspect]
     Dosage: 240 MG, 1X/DAY
     Route: 048
     Dates: start: 20120723
  4. FOLBIC [Concomitant]
     Dosage: 2.5 UNK, 1X/DAY
  5. VITAMIN C [Concomitant]
     Dosage: 500 UNK, 1X/DAY

REACTIONS (6)
  - Myocardial infarction [Unknown]
  - Blood pressure inadequately controlled [Unknown]
  - Blood pressure diastolic abnormal [Unknown]
  - Cardiac murmur [Unknown]
  - Arrhythmia [Unknown]
  - Body height decreased [Unknown]
